FAERS Safety Report 8232689-3 (Version None)
Quarter: 2012Q1

REPORT INFORMATION
  Report Type: 
  Country: None (occurrence: None)
  Receive Date: 20120323
  Receipt Date: 20120319
  Transmission Date: 20120608
  Serious: Yes (Other)
  Sender: FDA-Public Use
  Company Number: PHEH2012US006337

PATIENT
  Sex: Female

DRUGS (2)
  1. DIOVAN HCT [Suspect]
     Dosage: 1 DF (320/25MG), BID
  2. METOPROLOL - SLOW RELEASE [Concomitant]
     Dosage: 500 MG, PRN

REACTIONS (3)
  - HYPERTENSION [None]
  - INCORRECT DOSE ADMINISTERED [None]
  - POLYCYTHAEMIA [None]
